FAERS Safety Report 7274909-8 (Version None)
Quarter: 2011Q1

REPORT INFORMATION
  Report Type: 
  Country: None (occurrence: None)
  Receive Date: 20110204
  Receipt Date: 20110126
  Transmission Date: 20110831
  Serious: Yes (Other)
  Sender: FDA-Public Use
  Company Number: CL-JNJFOC-20090701917

PATIENT
  Sex: Female
  Weight: 67 kg

DRUGS (30)
  1. GOLIMUMAB [Suspect]
     Route: 058
  2. GOLIMUMAB [Suspect]
     Route: 058
  3. PLACEBO [Suspect]
     Indication: RHEUMATOID ARTHRITIS
     Route: 058
  4. ALPRAZOLAM [Concomitant]
     Route: 048
  5. PARACETAMOL [Concomitant]
     Route: 048
  6. CYCLOBENZAPRINE [Concomitant]
     Route: 048
  7. GOLIMUMAB [Suspect]
     Route: 058
  8. GOLIMUMAB [Suspect]
     Route: 058
  9. GOLIMUMAB [Suspect]
     Route: 058
  10. METHOTREXATE [Concomitant]
     Route: 048
  11. DOLOSPAM [Concomitant]
     Route: 048
  12. METFORMIN HCL [Concomitant]
     Route: 048
  13. GOLIMUMAB [Suspect]
     Route: 058
  14. GOLIMUMAB [Suspect]
     Route: 058
  15. PREDNISONE [Concomitant]
     Route: 048
  16. AMITRIPTYLINE HCL [Concomitant]
     Route: 048
  17. FOLIC ACID [Concomitant]
  18. GOLIMUMAB [Suspect]
     Indication: RHEUMATOID ARTHRITIS
     Route: 058
  19. GOLIMUMAB [Suspect]
     Route: 058
  20. GOLIMUMAB [Suspect]
     Route: 058
  21. SERTRALINE [Concomitant]
     Route: 048
  22. ENALAPRIL MALEATE [Concomitant]
     Route: 048
  23. GOLIMUMAB [Suspect]
     Route: 058
  24. GOLIMUMAB [Suspect]
     Route: 058
  25. METHOTREXATE [Suspect]
     Indication: RHEUMATOID ARTHRITIS
     Route: 048
  26. ASPIRIN [Concomitant]
     Route: 048
  27. GOLIMUMAB [Suspect]
     Route: 058
  28. GOLIMUMAB [Suspect]
     Route: 058
  29. GOLIMUMAB [Suspect]
     Route: 058
  30. GOLIMUMAB [Suspect]
     Route: 058

REACTIONS (1)
  - H1N1 INFLUENZA [None]
